FAERS Safety Report 23648519 (Version 2)
Quarter: 2024Q2

REPORT INFORMATION
  Report Type: Spontaneous
  Country: ES (occurrence: ES)
  Receive Date: 20240319
  Receipt Date: 20240625
  Transmission Date: 20240716
  Serious: Yes (Hospitalization, Other)
  Sender: FDA-Public Use
  Company Number: ES-PFIZER INC-PV202400034709

PATIENT
  Age: 77 Year
  Sex: Female

DRUGS (1)
  1. LORAZEPAM [Suspect]
     Active Substance: LORAZEPAM
     Indication: Anxiety
     Dosage: 4 HALF OF TABLETS (IN TOTAL 2 TABLETS)

REACTIONS (14)
  - Depression [Unknown]
  - Drug abuser [Unknown]
  - Pneumonia bacterial [Unknown]
  - Blood pressure decreased [Unknown]
  - Apathy [Unknown]
  - Disorientation [Unknown]
  - Somnolence [Unknown]
  - Dizziness [Unknown]
  - Malaise [Unknown]
  - Drug ineffective [Unknown]
  - Urine analysis abnormal [Unknown]
  - Emotional distress [Unknown]
  - Nervousness [Unknown]
  - Autonomic nervous system imbalance [Unknown]
